FAERS Safety Report 8691943 (Version 3)
Quarter: 2013Q4

REPORT INFORMATION
  Report Type: Spontaneous
  Country: CO (occurrence: CO)
  Receive Date: 20120730
  Receipt Date: 20131107
  Transmission Date: 20140711
  Serious: Yes (Death, Hospitalization, Other)
  Sender: FDA-Public Use
  Company Number: CO-009507513-1207COL010919

PATIENT
  Age: 49 Year
  Sex: Male

DRUGS (7)
  1. PEG-INTRON [Suspect]
     Indication: HEPATITIS VIRAL
     Dosage: UNK
     Dates: start: 20120509, end: 20120727
  2. ISONIAZID [Concomitant]
  3. RIBAVIRIN [Concomitant]
  4. ACETAMINOPHEN [Concomitant]
  5. PROPRANOLOL [Concomitant]
  6. LEVOTHYROXINE [Concomitant]
  7. OMEPRAZOLE [Concomitant]

REACTIONS (6)
  - Diabetic coma [Fatal]
  - Blood glucose increased [Not Recovered/Not Resolved]
  - Vomiting [Not Recovered/Not Resolved]
  - Asthenia [Not Recovered/Not Resolved]
  - Dizziness [Not Recovered/Not Resolved]
  - Diabetes mellitus [Not Recovered/Not Resolved]
